FAERS Safety Report 10032727 (Version 1)
Quarter: 2014Q1

REPORT INFORMATION
  Report Type: Spontaneous
  Country: IT (occurrence: IT)
  Receive Date: 20140324
  Receipt Date: 20140324
  Transmission Date: 20141002
  Serious: Yes (Hospitalization)
  Sender: FDA-Public Use
  Company Number: IT-GLAXOSMITHKLINE-B0979145A

PATIENT
  Age: 78 Year
  Sex: Female

DRUGS (9)
  1. ARIXTRA [Suspect]
     Indication: THROMBOSIS PROPHYLAXIS
     Route: 058
     Dates: start: 20130101, end: 20131207
  2. CARDIOASPIRIN [Suspect]
     Indication: THROMBOSIS PROPHYLAXIS
     Route: 048
     Dates: start: 20130101, end: 20131207
  3. ROCALTROL [Concomitant]
     Route: 048
  4. TRIATEC [Concomitant]
     Route: 048
  5. CALCIUM CARBONATE [Concomitant]
     Route: 048
  6. BECOZYME [Concomitant]
     Route: 048
  7. EUTIROX [Concomitant]
     Route: 048
  8. ZOLOFT [Concomitant]
     Route: 048
  9. PEPTAZOL [Concomitant]
     Route: 048

REACTIONS (4)
  - Rectal haemorrhage [Unknown]
  - Intestinal haemorrhage [Unknown]
  - Hypotension [Unknown]
  - Pallor [Unknown]
